FAERS Safety Report 16762819 (Version 1)
Quarter: 2019Q3

REPORT INFORMATION
  Report Type: Spontaneous
  Country: JP (occurrence: JP)
  Receive Date: 20190901
  Receipt Date: 20190901
  Transmission Date: 20191005
  Serious: Yes (Hospitalization)
  Sender: FDA-Public Use
  Company Number: JP-009507513-1907JPN001758J

PATIENT
  Age: 7 Decade
  Sex: Male

DRUGS (3)
  1. PACLITAXEL ALBUMIN [Concomitant]
     Active Substance: PACLITAXEL
     Dosage: UNK
     Route: 051
     Dates: start: 201901, end: 201906
  2. KEYTRUDA [Suspect]
     Active Substance: PEMBROLIZUMAB
     Indication: NON-SMALL CELL LUNG CANCER
     Dosage: 200 MILLIGRAM, Q3W
     Route: 041
     Dates: start: 201901, end: 201906
  3. CARBOPLATIN. [Concomitant]
     Active Substance: CARBOPLATIN
     Dosage: UNK
     Route: 051
     Dates: start: 201901, end: 201906

REACTIONS (1)
  - Platelet count decreased [Recovered/Resolved]

NARRATIVE: CASE EVENT DATE: 201906
